FAERS Safety Report 6236606-7 (Version None)
Quarter: 2009Q2

REPORT INFORMATION
  Report Type: 
  Country: None (occurrence: None)
  Receive Date: 20090619
  Receipt Date: 20080908
  Transmission Date: 20091009
  Serious: No
  Sender: FDA-Public Use
  Company Number: US-ASTRAZENECA-2007UW07118

PATIENT
  Age: 68 Year
  Sex: Female
  Weight: 61.2 kg

DRUGS (2)
  1. ATACAND [Suspect]
     Indication: HYPERTENSION
     Route: 048
     Dates: start: 20070101
  2. CRESTOR [Concomitant]
     Indication: BLOOD CHOLESTEROL INCREASED
     Route: 048

REACTIONS (5)
  - COUGH [None]
  - EXOSTOSIS [None]
  - HYPERHIDROSIS [None]
  - PAIN IN EXTREMITY [None]
  - TREMOR [None]
